FAERS Safety Report 5843198-0 (Version None)
Quarter: 2008Q3

REPORT INFORMATION
  Report Type: 
  Country: None (occurrence: None)
  Receive Date: 20080813
  Receipt Date: 20080804
  Transmission Date: 20090109
  Serious: Yes (Other)
  Sender: FDA-Public Use
  Company Number: PHHO2008GB09724

PATIENT
  Sex: Female

DRUGS (3)
  1. TASIGNA [Suspect]
     Indication: CHRONIC MYELOID LEUKAEMIA
     Dosage: 300 MG, BID
     Route: 048
     Dates: end: 20080730
  2. TASIGNA [Suspect]
     Dosage: UNK
     Dates: start: 20080731, end: 20080807
  3. TASIGNA [Suspect]
     Dosage: 300 MG, BID
     Dates: start: 20080808

REACTIONS (1)
  - SUPRAVENTRICULAR TACHYCARDIA [None]
